FAERS Safety Report 23241898 (Version 1)
Quarter: 2023Q4

REPORT INFORMATION
  Report Type: Spontaneous
  Country: HR (occurrence: HR)
  Receive Date: 20231129
  Receipt Date: 20231129
  Transmission Date: 20240109
  Serious: Yes (Hospitalization, Other)
  Sender: FDA-Public Use
  Company Number: None

PATIENT
  Age: 6 Year
  Sex: Male
  Weight: 19 kg

DRUGS (7)
  1. VINCRISTINE [Suspect]
     Active Substance: VINCRISTINE
     Indication: Nephroblastoma
     Dosage: VCR 1.2 MG (15JUL, 22JUL, 29JUL, 5AUG2023)
     Route: 042
     Dates: start: 20230715, end: 20230805
  2. VINCRISTINE [Suspect]
     Active Substance: VINCRISTINE
     Dosage: VCR 1.2 MG (15JUL, 22JUL, 29JUL, 5AUG2023)
     Route: 042
     Dates: start: 20230715, end: 20230805
  3. VINCRISTINE [Suspect]
     Active Substance: VINCRISTINE
     Dosage: VCR 1.1 MG (28AUG, 4SEP2023)
     Route: 042
     Dates: start: 20230828, end: 20230904
  4. VINCRISTINE [Suspect]
     Active Substance: VINCRISTINE
     Dosage: VCR 1.1 MG (28AUG, 4SEP2023)
     Route: 042
     Dates: start: 20230828, end: 20230904
  5. DACTINOMYCIN [Suspect]
     Active Substance: DACTINOMYCIN
     Indication: Nephroblastoma
     Dosage: 1.PREOP.CYCLE IN COMBINATION WITH VINCRISTINE ACCORDING TO THE UMBRELLA SIOP 2016 PROTOCOL VACCINE
     Route: 042
     Dates: start: 20230715, end: 20230716
  6. DACTINOMYCIN [Suspect]
     Active Substance: DACTINOMYCIN
     Dosage: 2.PREOP.CYCLE IN COMBINATION WITH VINCRISTINE ACCORDING TO THE UMBRELLA SIOP 2016 PROTOCOL VACCINE
     Route: 042
     Dates: start: 20230729, end: 20230729
  7. DACTINOMYCIN [Suspect]
     Active Substance: DACTINOMYCIN
     Dosage: 1.POSTOP.CYCLE IN COMBINATION WITH VINCRISTINE ACCORDING TO THE UMBRELLA SIOP 2016 PROTOCOL VACCINE
     Route: 042
     Dates: start: 20230904, end: 20230904

REACTIONS (10)
  - Venoocclusive liver disease [Recovered/Resolved]
  - Abdominal pain upper [Recovered/Resolved]
  - Ascites [Recovered/Resolved]
  - Hyperbilirubinaemia [Recovered/Resolved]
  - Hepatomegaly [Recovered/Resolved]
  - Pleural effusion [Recovered/Resolved]
  - Fluid retention [Recovered/Resolved]
  - Weight increased [Recovered/Resolved]
  - Thrombocytopenia [Recovered/Resolved]
  - Off label use [Unknown]

NARRATIVE: CASE EVENT DATE: 20230715
